FAERS Safety Report 15438654 (Version 1)
Quarter: 2018Q4

REPORT INFORMATION
  Report Type: Spontaneous
  Country: US (occurrence: US)
  Receive Date: 20180928
  Receipt Date: 20180928
  Transmission Date: 20190204
  Serious: No
  Sender: FDA-Public Use
  Company Number: US-BION-007306

PATIENT
  Age: 69 Year
  Sex: Female
  Weight: 86.18 kg

DRUGS (1)
  1. IMODIUM A-D [Suspect]
     Active Substance: LOPERAMIDE HYDROCHLORIDE
     Indication: PROPHYLAXIS
     Dosage: DOSE: 1 OR 2 SOFTGELS AS NEEDED
     Route: 048

REACTIONS (3)
  - Incorrect dose administered [Not Recovered/Not Resolved]
  - Product use complaint [Unknown]
  - Product use in unapproved indication [Not Recovered/Not Resolved]
